FAERS Safety Report 12353039 (Version 2)
Quarter: 2016Q2

REPORT INFORMATION
  Report Type: Spontaneous
  Country: IT (occurrence: IT)
  Receive Date: 20160510
  Receipt Date: 20160602
  Transmission Date: 20160815
  Serious: Yes (Other)
  Sender: FDA-Public Use
  Company Number: IT-ABBVIE-16P-083-1625430-00

PATIENT
  Age: 32 Year
  Sex: Male

DRUGS (2)
  1. FRILANS [Concomitant]
     Active Substance: LANSOPRAZOLE
     Indication: PRODUCT USED FOR UNKNOWN INDICATION
  2. MACLADIN [Suspect]
     Active Substance: CLARITHROMYCIN
     Indication: MULTIPLE SCLEROSIS RELAPSE
     Route: 058
     Dates: start: 20150619, end: 20160319

REACTIONS (4)
  - Hyperpyrexia [Unknown]
  - Product use issue [Unknown]
  - Face oedema [Unknown]
  - Incorrect route of drug administration [Unknown]

NARRATIVE: CASE EVENT DATE: 20160319
